FAERS Safety Report 8444203-8 (Version None)
Quarter: 2012Q2

REPORT INFORMATION
  Report Type: 
  Country: None (occurrence: None)
  Receive Date: 20120618
  Receipt Date: 20120611
  Transmission Date: 20120825
  Serious: Yes (Hospitalization, Other)
  Sender: FDA-Public Use
  Company Number: GB-VERTEX PHARMACEUTICALS INC.-000000000000000479

PATIENT
  Sex: Male
  Weight: 118 kg

DRUGS (4)
  1. FILGRASTIM [Concomitant]
     Indication: NEUTROPENIA
     Dates: start: 20120308, end: 20120326
  2. PEGASYS [Concomitant]
     Indication: HEPATITIS C
     Route: 058
     Dates: start: 20120217, end: 20120326
  3. RIBAVIRIN [Concomitant]
     Indication: HEPATITIS C
     Route: 048
     Dates: start: 20120217, end: 20120326
  4. TELAPREVIR [Suspect]
     Indication: HEPATITIS C
     Dosage: DOSAGE FORM: TABLET
     Route: 048
     Dates: start: 20120217, end: 20120326

REACTIONS (4)
  - HEPATIC CIRRHOSIS [None]
  - HEPATIC FAILURE [None]
  - NEUTROPENIA [None]
  - OEDEMA [None]
